FAERS Safety Report 8471657-3 (Version None)
Quarter: 2012Q2

REPORT INFORMATION
  Report Type: 
  Country: None (occurrence: None)
  Receive Date: 20120323
  Receipt Date: 20111216
  Transmission Date: 20120825
  Serious: Yes (Hospitalization)
  Sender: FDA-Public Use
  Company Number: 163-21880-11110642

PATIENT
  Age: 88 Year
  Sex: Female

DRUGS (7)
  1. PRILOSEC [Concomitant]
  2. INDOMETHACIN [Concomitant]
  3. TYENOL (PARACETAMOL) [Concomitant]
  4. DEXAMETHASONE [Concomitant]
  5. CLONIDINE [Concomitant]
  6. REVLIMID [Suspect]
     Indication: MULTIPLE MYELOMA
     Dosage: 15 MG, DAILY X 21 DAYS, PO
     Route: 048
     Dates: start: 20111006
  7. OMEPRAZOLE [Concomitant]

REACTIONS (2)
  - MUSCULOSKELETAL PAIN [None]
  - DYSPNOEA [None]
